FAERS Safety Report 7228806-4 (Version None)
Quarter: 2011Q1

REPORT INFORMATION
  Report Type: 
  Country: None (occurrence: None)
  Receive Date: 20110117
  Receipt Date: 20090304
  Transmission Date: 20110831
  Serious: No
  Sender: FDA-Public Use
  Company Number: 2009BI006921

PATIENT
  Sex: Male

DRUGS (1)
  1. TYSABRI [Suspect]
     Indication: MULTIPLE SCLEROSIS
     Route: 042
     Dates: start: 20071011

REACTIONS (5)
  - GAIT DISTURBANCE [None]
  - MEMORY IMPAIRMENT [None]
  - ABASIA [None]
  - URINARY INCONTINENCE [None]
  - COGNITIVE DISORDER [None]
